FAERS Safety Report 7540875-0 (Version None)
Quarter: 2011Q2

REPORT INFORMATION
  Report Type: 
  Country: None (occurrence: None)
  Receive Date: 20110610
  Receipt Date: 20110531
  Transmission Date: 20111010
  Serious: Yes (Hospitalization)
  Sender: FDA-Public Use
  Company Number: JP-UCBSA-028606

PATIENT
  Sex: Female

DRUGS (4)
  1. FOLIC ACID [Suspect]
     Indication: RHEUMATOID ARTHRITIS
     Route: 048
     Dates: start: 20080615, end: 20110213
  2. CERTOLIZUMAB PEGOL [Suspect]
     Indication: RHEUMATOID ARTHRITIS
     Route: 058
     Dates: start: 20090715, end: 20110124
  3. MUCOSTA TABLETS (REBAMIPIDE) [Suspect]
     Indication: PROPHYLAXIS
     Route: 048
     Dates: start: 20090422, end: 20110217
  4. RHEUMATREX [Suspect]
     Indication: RHEUMATOID ARTHRITIS
     Route: 048
     Dates: start: 20080711, end: 20110212

REACTIONS (1)
  - SALIVARY GLAND NEOPLASM [None]
